FAERS Safety Report 19474263 (Version 2)
Quarter: 2021Q3

REPORT INFORMATION
  Report Type: Spontaneous
  Country: RS (occurrence: RS)
  Receive Date: 20210630
  Receipt Date: 20210721
  Transmission Date: 20211014
  Serious: Yes (Other)
  Sender: FDA-Public Use
  Company Number: RS-ROCHE-2856662

PATIENT
  Sex: Female

DRUGS (2)
  1. ACTEMRA [Suspect]
     Active Substance: TOCILIZUMAB
     Indication: STILL^S DISEASE
     Route: 042
     Dates: start: 20200609
  2. BACTRIM [Concomitant]
     Active Substance: SULFAMETHOXAZOLE\TRIMETHOPRIM
     Indication: URINARY TRACT INFECTION

REACTIONS (12)
  - Dyspnoea [Unknown]
  - Hepatic enzyme increased [Unknown]
  - Hypofibrinogenaemia [Unknown]
  - Haemophagocytic lymphohistiocytosis [Recovering/Resolving]
  - Pyrexia [Unknown]
  - Serum ferritin increased [Unknown]
  - Fibrin D dimer increased [Unknown]
  - Rash macular [Unknown]
  - Vasculitis [Unknown]
  - Vomiting [Unknown]
  - Bicytopenia [Unknown]
  - Blood triglycerides increased [Unknown]

NARRATIVE: CASE EVENT DATE: 20210212
